FAERS Safety Report 11893942 (Version 4)
Quarter: 2016Q3

REPORT INFORMATION
  Report Type: Spontaneous
  Country: US (occurrence: US)
  Receive Date: 20160107
  Receipt Date: 20160923
  Transmission Date: 20161109
  Serious: Yes (Hospitalization, Other)
  Sender: FDA-Public Use
  Company Number: US-ASTRAZENECA-2016SE00776

PATIENT
  Age: 77 Year
  Sex: Female
  Weight: 90.7 kg

DRUGS (6)
  1. TUDORZA PRESSAIR [Suspect]
     Active Substance: ACLIDINIUM BROMIDE
     Indication: CHRONIC OBSTRUCTIVE PULMONARY DISEASE
     Route: 055
     Dates: start: 2014
  2. FOLIC ACID. [Concomitant]
     Active Substance: FOLIC ACID
  3. XARELTO [Concomitant]
     Active Substance: RIVAROXABAN
     Dosage: ONCE PER DAY
     Dates: start: 201406
  4. HYDROCHLOROTHIAZIDE. [Suspect]
     Active Substance: HYDROCHLOROTHIAZIDE
     Indication: BLOOD PRESSURE ABNORMAL
     Dosage: 12.5 MG, DAILY, NON-ASTRAZENECA PRODUCT
     Route: 048
     Dates: start: 2001
  5. VITAMIN D [Concomitant]
     Active Substance: CHOLECALCIFEROL
  6. CARDIA [Concomitant]
     Active Substance: AJMALINE
     Indication: HYPERTENSION
     Route: 048
     Dates: start: 2015

REACTIONS (7)
  - Malaise [Unknown]
  - Pulmonary embolism [Unknown]
  - Product quality issue [Unknown]
  - Lung neoplasm malignant [Unknown]
  - Body height decreased [Unknown]
  - Device malfunction [Unknown]
  - Circumstance or information capable of leading to medication error [Unknown]

NARRATIVE: CASE EVENT DATE: 2014
